FAERS Safety Report 10367627 (Version 3)
Quarter: 2014Q3

REPORT INFORMATION
  Report Type: Report from Study
  Country: TR (occurrence: TR)
  Receive Date: 20140807
  Receipt Date: 20140825
  Transmission Date: 20150326
  Serious: Yes (Hospitalization)
  Sender: FDA-Public Use
  Company Number: TR-JNJFOC-20140803167

PATIENT
  Age: 59 Year
  Sex: Female
  Weight: 87 kg

DRUGS (1)
  1. SIMPONI [Suspect]
     Active Substance: GOLIMUMAB
     Indication: ANKYLOSING SPONDYLITIS
     Dosage: THE PATIENT RECEIVED APPROXIMATELY 4 INJECTIONS
     Route: 058
     Dates: start: 20131202

REACTIONS (2)
  - Thymoma [Recovered/Resolved]
  - Influenza [Recovered/Resolved]

NARRATIVE: CASE EVENT DATE: 201404
